FAERS Safety Report 5715727-9 (Version None)
Quarter: 2008Q2

REPORT INFORMATION
  Report Type: 
  Country: None (occurrence: None)
  Receive Date: 20080423
  Receipt Date: 20080423
  Transmission Date: 20081010
  Serious: Yes (Death, Hospitalization)
  Sender: FDA-Public Use
  Company Number: None

PATIENT
  Sex: Male
  Weight: 63.1 kg

DRUGS (2)
  1. FLUOROURACIL [Suspect]
     Dosage: 3630 MG
  2. LEUCOVORIN CALCIUM [Suspect]
     Dosage: 171 MG

REACTIONS (10)
  - ASPIRATION [None]
  - BACTERIAL INFECTION [None]
  - DEHYDRATION [None]
  - FEBRILE NEUTROPENIA [None]
  - GENERAL PHYSICAL HEALTH DETERIORATION [None]
  - NAUSEA [None]
  - PNEUMONITIS [None]
  - REFUSAL OF TREATMENT BY PATIENT [None]
  - SEPSIS [None]
  - VOMITING [None]
